FAERS Safety Report 5406552-7 (Version None)
Quarter: 2007Q3

REPORT INFORMATION
  Report Type: 
  Country: None (occurrence: None)
  Receive Date: 20070806
  Receipt Date: 20070731
  Transmission Date: 20080115
  Serious: Yes (Other)
  Sender: FDA-Public Use
  Company Number: US-PFIZER INC-2007046490

PATIENT
  Sex: Female
  Weight: 65.8 kg

DRUGS (2)
  1. LYRICA [Suspect]
     Indication: NEURALGIA
     Route: 048
     Dates: start: 20070129, end: 20070618
  2. LORTAB [Concomitant]

REACTIONS (4)
  - ALOPECIA [None]
  - MEDICAL DEVICE REMOVAL [None]
  - SOMNOLENCE [None]
  - SPINAL DECOMPRESSION [None]
